FAERS Safety Report 8914712 (Version 1)
Quarter: 2012Q4

REPORT INFORMATION
  Report Type: 
  Country: US (occurrence: US)
  Receive Date: 20121116
  Receipt Date: 20121116
  Transmission Date: 20130627
  Serious: Yes (Disabling, Other)
  Sender: FDA-Public Use
  Company Number: US-ASTRAZENECA-2012SE84847

PATIENT
  Age: 63 Year
  Sex: Male

DRUGS (2)
  1. LIDOCAINE [Suspect]
     Route: 008
  2. BETAMETHASONE [Suspect]
     Dosage: 6 MG/ML
     Route: 008

REACTIONS (2)
  - Spinal cord infarction [Recovering/Resolving]
  - Colonic pseudo-obstruction [Unknown]
